FAERS Safety Report 5237002-1 (Version None)
Quarter: 2007Q1

REPORT INFORMATION
  Report Type: 
  Country: None (occurrence: None)
  Receive Date: 20061208
  Receipt Date: 20050215
  Transmission Date: 20070707
  Serious: Yes (Other)
  Sender: FDA-Public Use
  Company Number: 2005UW02982

PATIENT
  Age: 60 Year
  Sex: Male
  Weight: 87.9978 kg

DRUGS (4)
  1. CRESTOR [Suspect]
     Dosage: 40 MG DAILY PO
     Route: 048
  2. LEVITRA [Concomitant]
  3. LAC-HYDRIN [Concomitant]
  4. LIDEX [Concomitant]

REACTIONS (6)
  - ERECTILE DYSFUNCTION [None]
  - LIP PAIN [None]
  - NEOPLASM SKIN [None]
  - PAIN IN EXTREMITY [None]
  - PARAESTHESIA [None]
  - SKIN PAPILLOMA [None]
